FAERS Safety Report 6403577-X (Version None)
Quarter: 2009Q4

REPORT INFORMATION
  Report Type: 
  Country: None (occurrence: None)
  Receive Date: 20091015
  Receipt Date: 20091015
  Transmission Date: 20100525
  Serious: Yes (Death)
  Sender: FDA-Public Use
  Company Number: None

PATIENT
  Age: 23 Year
  Sex: Male
  Weight: 68.0396 kg

DRUGS (2)
  1. DICYCLOMINE 20 MG QTY:40 TAB LAN [Suspect]
     Indication: ABDOMINAL PAIN
     Dosage: 20 MG AS NEEDED
     Dates: start: 20090724, end: 20090802
  2. TOPROL-XL [Concomitant]

REACTIONS (3)
  - BLOOD PRESSURE INCREASED [None]
  - COMPLETED SUICIDE [None]
  - GUN SHOT WOUND [None]
